FAERS Safety Report 7333161-5 (Version None)
Quarter: 2011Q1

REPORT INFORMATION
  Report Type: 
  Country: None (occurrence: None)
  Receive Date: 20110304
  Receipt Date: 20110223
  Transmission Date: 20110831
  Serious: Yes (Hospitalization)
  Sender: FDA-Public Use
  Company Number: US-ASTRAZENECA-2011SE10334

PATIENT
  Age: 44 Year
  Sex: Female

DRUGS (5)
  1. ATIVAN [Concomitant]
     Route: 048
  2. ZOLOFT [Concomitant]
     Route: 048
  3. TRILEPTAL [Concomitant]
     Route: 048
  4. SEROQUEL XR [Suspect]
     Indication: DEPRESSION
     Route: 048
  5. SEROQUEL XR [Suspect]
     Indication: SLEEP DISORDER
     Route: 048

REACTIONS (4)
  - ASTHMA [None]
  - DYSPNOEA [None]
  - PNEUMONIA [None]
  - NEPHRECTOMY [None]
